FAERS Safety Report 14544843 (Version 1)
Quarter: 2018Q1

REPORT INFORMATION
  Report Type: Spontaneous
  Country: IE (occurrence: IE)
  Receive Date: 20180217
  Receipt Date: 20180217
  Transmission Date: 20180509
  Serious: Yes (Life-Threatening, Hospitalization)
  Sender: FDA-Public Use
  Company Number: IE-MYLANLABS-2018M1010102

PATIENT
  Age: 9 Decade
  Sex: Male

DRUGS (1)
  1. CYKLOKAPRON [Suspect]
     Active Substance: TRANEXAMIC ACID
     Indication: IMMUNE THROMBOCYTOPENIC PURPURA
     Dosage: 2 DF, Q4D
     Route: 048

REACTIONS (3)
  - Incorrect drug administration duration [Unknown]
  - Hospitalisation [Unknown]
  - Product use in unapproved indication [Unknown]
